FAERS Safety Report 10490648 (Version 2)
Quarter: 2014Q4

REPORT INFORMATION
  Report Type: Spontaneous
  Country: US (occurrence: US)
  Receive Date: 20141002
  Receipt Date: 20141002
  Transmission Date: 20150528
  Serious: No
  Sender: FDA-Public Use
  Company Number: US-GLAXOSMITHKLINE-A1026470A

PATIENT
  Age: 59 Year
  Sex: Female

DRUGS (1)
  1. ADVAIR HFA [Suspect]
     Active Substance: FLUTICASONE PROPIONATE\SALMETEROL XINAFOATE
     Indication: CHRONIC OBSTRUCTIVE PULMONARY DISEASE
     Route: 065
     Dates: start: 201304

REACTIONS (4)
  - Treatment noncompliance [Unknown]
  - Fall [Unknown]
  - Back injury [Unknown]
  - Productive cough [Unknown]

NARRATIVE: CASE EVENT DATE: 201305
